FAERS Safety Report 23164265 (Version 1)
Quarter: 2023Q4

REPORT INFORMATION
  Report Type: Spontaneous
  Country: KR (occurrence: KR)
  Receive Date: 20231109
  Receipt Date: 20231109
  Transmission Date: 20240110
  Serious: Yes (Hospitalization, Other)
  Sender: FDA-Public Use
  Company Number: KR-MankindUS-000106

PATIENT
  Age: 40 Year
  Sex: Female

DRUGS (4)
  1. BACLOFEN [Suspect]
     Active Substance: BACLOFEN
     Indication: Headache
  2. AFLOQUALONE [Concomitant]
     Active Substance: AFLOQUALONE
     Indication: Headache
  3. DEXIBUPROFEN [Concomitant]
     Active Substance: DEXIBUPROFEN
     Indication: Headache
     Dosage: 400 MG TWICE A DAY
  4. AMITRIPTYLINE [Concomitant]
     Active Substance: AMITRIPTYLINE
     Indication: Headache

REACTIONS (6)
  - Toxicity to various agents [Unknown]
  - Seizure [Recovered/Resolved]
  - Coma [Recovered/Resolved]
  - Blood creatine phosphokinase increased [Unknown]
  - Blood lactic acid increased [Unknown]
  - Dyspnoea [Recovered/Resolved]
